FAERS Safety Report 12465122 (Version 1)
Quarter: 2016Q2

REPORT INFORMATION
  Report Type: Spontaneous
  Country: VE (occurrence: VE)
  Receive Date: 20160614
  Receipt Date: 20160614
  Transmission Date: 20160815
  Serious: Yes (Hospitalization)
  Sender: FDA-Public Use
  Company Number: PHHY2016VE081235

PATIENT
  Sex: Male

DRUGS (4)
  1. FORADIL [Suspect]
     Active Substance: FORMOTEROL FUMARATE
     Indication: EMPHYSEMA
     Dosage: 12 UG, Q12H
     Route: 055
  2. FORADIL [Suspect]
     Active Substance: FORMOTEROL FUMARATE
     Indication: NEOPLASM
  3. MIFLONIDE [Suspect]
     Active Substance: BUDESONIDE
     Indication: NEOPLASM
  4. MIFLONIDE [Suspect]
     Active Substance: BUDESONIDE
     Indication: EMPHYSEMA
     Dosage: 400 UG, Q12H
     Route: 055

REACTIONS (3)
  - Insomnia [Not Recovered/Not Resolved]
  - Product use issue [Unknown]
  - Asphyxia [Not Recovered/Not Resolved]
